FAERS Safety Report 4741284-X (Version None)
Quarter: 2005Q3

REPORT INFORMATION
  Report Type: 
  Country: None (occurrence: None)
  Receive Date: 20050810
  Receipt Date: 20041227
  Transmission Date: 20060218
  Serious: No
  Sender: FDA-Public Use
  Company Number: US-GLAXOSMITHKLINE-A0538540A

PATIENT
  Age: 54 Year
  Sex: Male

DRUGS (6)
  1. PAXIL [Suspect]
     Indication: POST-TRAUMATIC STRESS DISORDER
     Dosage: 40MG PER DAY
     Route: 048
     Dates: start: 20010101
  2. ATENOLOL [Concomitant]
  3. FEXOFENADINE HCL [Concomitant]
  4. PIROXICAM [Concomitant]
  5. SIMETHICONE [Concomitant]
  6. CLONAZEPAM [Concomitant]

REACTIONS (3)
  - DRUG WITHDRAWAL SYNDROME [None]
  - INFLUENZA LIKE ILLNESS [None]
  - LIBIDO DECREASED [None]
